FAERS Safety Report 16945829 (Version 1)
Quarter: 2019Q4

REPORT INFORMATION
  Report Type: Spontaneous
  Country: US (occurrence: US)
  Receive Date: 20191022
  Receipt Date: 20191022
  Transmission Date: 20200122
  Serious: Yes (Other)
  Sender: FDA-Public Use
  Company Number: US-AMGEN-USASP2019169165

PATIENT
  Sex: Female

DRUGS (1)
  1. REPATHA [Suspect]
     Active Substance: EVOLOCUMAB
     Indication: PRODUCT USED FOR UNKNOWN INDICATION
     Dosage: 140 MILLIGRAM
     Route: 065
     Dates: start: 201909

REACTIONS (5)
  - Throat tightness [Unknown]
  - Pyrexia [Unknown]
  - Hyperhidrosis [Unknown]
  - Chills [Unknown]
  - Myalgia [Unknown]

NARRATIVE: CASE EVENT DATE: 201909
